FAERS Safety Report 7472954-0 (Version None)
Quarter: 2011Q2

REPORT INFORMATION
  Report Type: 
  Country: None (occurrence: None)
  Receive Date: 20110503
  Receipt Date: 20110418
  Transmission Date: 20111010
  Serious: Yes (Hospitalization)
  Sender: FDA-Public Use
  Company Number: M1101951

PATIENT
  Age: 59 Year
  Sex: Female

DRUGS (4)
  1. LASIX [Concomitant]
  2. TRAZODONE HCL [Concomitant]
  3. COREG [Concomitant]
  4. PACERONE [Suspect]
     Indication: CARDIAC FIBRILLATION
     Dosage: 2 IN 1 D, ORAL
     Route: 048
     Dates: start: 20101201

REACTIONS (5)
  - PARAESTHESIA [None]
  - PNEUMONIA [None]
  - TREMOR [None]
  - WEIGHT DECREASED [None]
  - ALOPECIA [None]
